FAERS Safety Report 10004909 (Version 2)
Quarter: 2014Q1

REPORT INFORMATION
  Report Type: Spontaneous
  Country: JP (occurrence: JP)
  Receive Date: 20140312
  Receipt Date: 20140312
  Transmission Date: 20141002
  Serious: Yes (Other)
  Sender: FDA-Public Use
  Company Number: PHHY2013JP077325

PATIENT
  Age: 36 Year
  Sex: Male
  Weight: 80 kg

DRUGS (29)
  1. CLOZARIL (CLOZAPINE) [Suspect]
     Indication: SCHIZOPHRENIA, PARANOID TYPE
     Dosage: 12.5 MG, UNK
     Route: 048
     Dates: start: 20110510, end: 20110512
  2. CLOZARIL (CLOZAPINE) [Suspect]
     Dosage: 25 MG, UNK
     Route: 048
     Dates: start: 20110513, end: 20110516
  3. CLOZARIL (CLOZAPINE) [Suspect]
     Dosage: 50 MG, UNK
     Route: 048
     Dates: start: 20110517, end: 20110520
  4. CLOZARIL (CLOZAPINE) [Suspect]
     Dosage: 75 MG, UNK
     Route: 048
     Dates: start: 20110521, end: 20110523
  5. CLOZARIL (CLOZAPINE) [Suspect]
     Dosage: 100 MG, UNK
     Route: 048
     Dates: start: 20110524, end: 20110525
  6. CLOZARIL (CLOZAPINE) [Suspect]
     Dosage: 125 MG, UNK
     Route: 048
     Dates: start: 20110526, end: 20110528
  7. CLOZARIL (CLOZAPINE) [Suspect]
     Dosage: 150 MG, UNK
     Route: 048
     Dates: start: 20110529, end: 20110530
  8. CLOZARIL (CLOZAPINE) [Suspect]
     Dosage: 175 MG, UNK
     Route: 048
     Dates: start: 20110531, end: 20110603
  9. CLOZARIL (CLOZAPINE) [Suspect]
     Dosage: 200 MG, UNK
     Route: 048
     Dates: start: 20110604, end: 20110613
  10. CLOZARIL (CLOZAPINE) [Suspect]
     Dosage: 250 MG, UNK
     Route: 048
     Dates: start: 20110614, end: 20110620
  11. CLOZARIL (CLOZAPINE) [Suspect]
     Dosage: 300 MG, UNK
     Route: 048
     Dates: start: 20110621, end: 20110627
  12. CLOZARIL (CLOZAPINE) [Suspect]
     Dosage: 350 MG, UNK
     Route: 048
     Dates: start: 20110628, end: 20110704
  13. CLOZARIL (CLOZAPINE) [Suspect]
     Dosage: 400 MG, UNK
     Route: 048
     Dates: start: 20110705, end: 20110711
  14. CLOZARIL (CLOZAPINE) [Suspect]
     Dosage: 450 MG, UNK
     Route: 048
     Dates: start: 20110712, end: 20110718
  15. CLOZARIL (CLOZAPINE) [Suspect]
     Dosage: 500 MG, UNK
     Route: 048
     Dates: start: 20110719, end: 20110801
  16. CLOZARIL (CLOZAPINE) [Suspect]
     Dosage: 550 MG, UNK
     Route: 048
     Dates: start: 20110802, end: 20110808
  17. CLOZARIL (CLOZAPINE) [Suspect]
     Dosage: 600 MG, UNK
     Route: 048
     Dates: start: 20110809, end: 20110819
  18. CLOZARIL (CLOZAPINE) [Suspect]
     Dosage: 400 MG, UNK
     Route: 048
     Dates: start: 20110920, end: 20120701
  19. CLOZARIL (CLOZAPINE) [Suspect]
     Dosage: 425 MG, UNK
     Route: 048
     Dates: start: 20120702, end: 20121028
  20. CLOZARIL (CLOZAPINE) [Suspect]
     Dosage: 400 MG, UNK
     Route: 048
     Dates: start: 20121029, end: 20130120
  21. CLOZARIL (CLOZAPINE) [Suspect]
     Dosage: 375 MG, UNK
     Route: 048
     Dates: start: 20130121
  22. RISPERIDONE [Suspect]
     Dosage: 1 MG
  23. ARIPIPRAZOLE [Suspect]
     Dosage: 30 MG
  24. OLANZAPINE [Suspect]
     Dosage: 7.5 MG
  25. ACINON [Concomitant]
     Indication: SCHIZOPHRENIA, PARANOID TYPE
     Dosage: 300 MG, UNK
     Route: 048
     Dates: start: 20091008, end: 20110608
  26. MEILAX [Concomitant]
     Indication: SCHIZOPHRENIA, PARANOID TYPE
     Dosage: 1 MG, UNK
     Route: 048
     Dates: start: 20091201
  27. MEILAX [Concomitant]
     Dosage: 1 MG, UNK
     Route: 048
     Dates: end: 20111124
  28. ROHYPNOL [Concomitant]
     Indication: SCHIZOPHRENIA, PARANOID TYPE
     Dosage: 1 MG, UNK
     Route: 048
     Dates: start: 20100818, end: 20110608
  29. OLMETEC [Concomitant]
     Indication: HYPERTENSION
     Dosage: 20 MG, UNK
     Route: 048
     Dates: start: 20101129, end: 20110608

REACTIONS (8)
  - Weight decreased [Not Recovered/Not Resolved]
  - Subileus [Recovering/Resolving]
  - Sedation [Recovered/Resolved]
  - Somnolence [Unknown]
  - Constipation [Unknown]
  - Akathisia [Unknown]
  - Abnormal behaviour [Unknown]
  - Drug ineffective [Unknown]
